FAERS Safety Report 6809505-7 (Version None)
Quarter: 2010Q2

REPORT INFORMATION
  Report Type: 
  Country: None (occurrence: None)
  Receive Date: 20100630
  Receipt Date: 20100618
  Transmission Date: 20101027
  Serious: Yes (Hospitalization)
  Sender: FDA-Public Use
  Company Number: DE-WYE-H15572610

PATIENT
  Sex: Male
  Weight: 11.45 kg

DRUGS (3)
  1. REFACTO [Suspect]
     Indication: FACTOR VIII DEFICIENCY
     Route: 042
     Dates: start: 20100416, end: 20100606
  2. REFACTO [Suspect]
     Dosage: ITT THERAPY 100 IU/KG BIWEEKLY
     Route: 042
     Dates: start: 20100601
  3. REFACTO [Suspect]
     Route: 042
     Dates: start: 20100101

REACTIONS (2)
  - FACTOR VIII INHIBITION [None]
  - HAEMARTHROSIS [None]
